FAERS Safety Report 15033684 (Version 1)
Quarter: 2018Q2

REPORT INFORMATION
  Report Type: Spontaneous
  Country: US (occurrence: US)
  Receive Date: 20180619
  Receipt Date: 20180619
  Transmission Date: 20180711
  Serious: Yes (Other)
  Sender: FDA-Public Use
  Company Number: US-VIFOR (INTERNATIONAL) INC.-VIT-2016-06387

PATIENT
  Sex: Male
  Weight: 88.98 kg

DRUGS (26)
  1. COUMADIN [Concomitant]
     Active Substance: WARFARIN SODIUM
  2. AMLODIPINE [Concomitant]
     Active Substance: AMLODIPINE BESYLATE
  3. VELTASSA [Suspect]
     Active Substance: PATIROMER
     Indication: HYPERKALAEMIA
     Route: 048
     Dates: start: 20160804
  4. SODIUM BICARBONATE. [Concomitant]
     Active Substance: SODIUM BICARBONATE
  5. MAGNESIUM [Concomitant]
     Active Substance: MAGNESIUM
  6. TYLENOL [Concomitant]
     Active Substance: ACETAMINOPHEN
  7. KAYEXALATE [Concomitant]
     Active Substance: SODIUM POLYSTYRENE SULFONATE
  8. TROSPIUM [Concomitant]
     Active Substance: TROSPIUM
  9. PANTOPRAZOLE [Concomitant]
     Active Substance: PANTOPRAZOLE
  10. FIBER LAXATIVE [Concomitant]
     Active Substance: CALCIUM POLYCARBOPHIL
  11. MUCINEX [Concomitant]
     Active Substance: GUAIFENESIN
  12. BISOPROLOL [Concomitant]
     Active Substance: BISOPROLOL
  13. ATENOLOL. [Concomitant]
     Active Substance: ATENOLOL
  14. ACETYLSALICYLIC ACID [Concomitant]
     Active Substance: ASPIRIN
  15. TESTINON [Concomitant]
     Active Substance: TESTOSTERONE
  16. IRON [Concomitant]
     Active Substance: IRON
  17. ELIQUIS [Concomitant]
     Active Substance: APIXABAN
  18. KIONEX [Concomitant]
     Active Substance: SODIUM POLYSTYRENE SULFONATE
  19. COLECALCIFEROL [Concomitant]
     Active Substance: CHOLECALCIFEROL
  20. BYSTOLIC [Concomitant]
     Active Substance: NEBIVOLOL HYDROCHLORIDE
  21. GLUCOSAMINE [Concomitant]
     Active Substance: GLUCOSAMINE
  22. NASONEX [Concomitant]
     Active Substance: MOMETASONE FUROATE
  23. VITAMINS NOS [Concomitant]
     Active Substance: VITAMINS
  24. DULCOLAX NOS [Concomitant]
     Active Substance: BISACODYL OR DOCUSATE SODIUM
  25. VALSARTAN. [Concomitant]
     Active Substance: VALSARTAN
  26. FOLTX [Concomitant]
     Active Substance: CYANOCOBALAMIN CO-57\FOLIC ACID\PYRIDOXINE HYDROCHLORIDE

REACTIONS (3)
  - Drug dose omission [Unknown]
  - Disease progression [Recovering/Resolving]
  - Chronic kidney disease [Recovering/Resolving]

NARRATIVE: CASE EVENT DATE: 2016
